FAERS Safety Report 9797991 (Version 1)
Quarter: 2014Q1

REPORT INFORMATION
  Report Type: Report from Study
  Country: NL (occurrence: NL)
  Receive Date: 20140106
  Receipt Date: 20140106
  Transmission Date: 20141002
  Serious: Yes (Death)
  Sender: FDA-Public Use
  Company Number: PHHY2014NL000529

PATIENT
  Sex: Female

DRUGS (3)
  1. ZOMETA [Suspect]
     Indication: BREAST CANCER METASTATIC
     Dosage: 4 MG, EVERY 8 WEEKS
     Route: 042
  2. ZOMETA [Suspect]
     Dosage: UNK UKN, UNK
     Dates: start: 20130926
  3. ZOMETA [Suspect]
     Dosage: UNK UKN, UNK
     Dates: start: 20131121

REACTIONS (1)
  - Death [Fatal]
